FAERS Safety Report 8391410-9 (Version None)
Quarter: 2012Q2

REPORT INFORMATION
  Report Type: 
  Country: None (occurrence: None)
  Receive Date: 20120529
  Receipt Date: 20120518
  Transmission Date: 20120825
  Serious: No
  Sender: FDA-Public Use
  Company Number: US-B.I. PHARMACEUTICALS,INC./RIDGEFIELD-2012-BP-11184BP

PATIENT
  Age: 81 Year
  Sex: Male

DRUGS (4)
  1. CRESTOR [Concomitant]
     Indication: BLOOD CHOLESTEROL
  2. TOPRIL [Concomitant]
     Indication: HYPERTENSION
  3. PRADAXA [Suspect]
     Dosage: 300 MG
     Route: 048
     Dates: start: 20120201
  4. LOTREL [Concomitant]
     Indication: HYPERTENSION

REACTIONS (1)
  - MIGRAINE [None]
